FAERS Safety Report 4829242-8 (Version None)
Quarter: 2005Q4

REPORT INFORMATION
  Report Type: 
  Country: None (occurrence: None)
  Receive Date: 20051116
  Receipt Date: 20051007
  Transmission Date: 20060501
  Serious: Yes (Death)
  Sender: FDA-Public Use
  Company Number: JP-BOEHRINGER INGELHEIM PHARMACEUTICALS, INC.-2005-BP-17871NB

PATIENT
  Sex: Male
  Weight: 53 kg

DRUGS (8)
  1. BI-SIFROL TABLETS [Suspect]
     Indication: PARKINSON'S DISEASE
     Route: 048
     Dates: start: 20040618, end: 20050115
  2. SENNOSIDE [Concomitant]
     Indication: CONSTIPATION
     Route: 048
     Dates: start: 20020617, end: 20050115
  3. ZESULAN [Concomitant]
     Indication: PRURITUS
     Route: 048
     Dates: start: 20040611, end: 20050115
  4. DOPS [Concomitant]
     Indication: PARKINSON'S DISEASE
     Route: 048
     Dates: start: 20041101, end: 20050115
  5. FLUCORT [Concomitant]
     Indication: ECZEMA
     Route: 048
     Dates: start: 20040723, end: 20050115
  6. ISODINE GARGLE (POVIDONE IODINE) [Concomitant]
     Dates: start: 20040827, end: 20050115
  7. EC DOPARL [Concomitant]
     Indication: PARKINSON'S DISEASE
     Route: 048
     Dates: start: 20041213, end: 20050115
  8. MUCOSTA [Concomitant]
     Indication: GASTRITIS
     Route: 048
     Dates: end: 20050115

REACTIONS (1)
  - SUBARACHNOID HAEMORRHAGE [None]
